FAERS Safety Report 7036197-7 (Version None)
Quarter: 2010Q4

REPORT INFORMATION
  Report Type: 
  Country: None (occurrence: None)
  Receive Date: 20101008
  Receipt Date: 20100809
  Transmission Date: 20110411
  Serious: No
  Sender: FDA-Public Use
  Company Number: US-BRISTOL-MYERS SQUIBB COMPANY-15231095

PATIENT
  Sex: Female

DRUGS (1)
  1. AVAPRO [Suspect]
     Dosage: DOSE INCREASED TO 300 MG ON 19MAY10;

REACTIONS (2)
  - BLOOD PRESSURE INCREASED [None]
  - DYSPEPSIA [None]
